FAERS Safety Report 11339909 (Version 1)
Quarter: 2015Q3

REPORT INFORMATION
  Report Type: Report from Study
  Country: KE (occurrence: None)
  Receive Date: 20150803
  Receipt Date: 20150803
  Transmission Date: 20151125
  Serious: Yes (Congenital Anomaly)
  Sender: FDA-Public Use
  Company Number: 2015HINCT0618

PATIENT
  Sex: Female

DRUGS (1)
  1. LAMIVUDINE+ZIDOVUDINE+NEVIRAPINE (LAMIVUDINE, ZIDOVUDINE, NEVIRAPINE) [Suspect]
     Active Substance: LAMIVUDINE\NEVIRAPINE\ZIDOVUDINE
     Indication: MATERNAL EXPOSURE DURING PREGNANCY
     Route: 064
     Dates: start: 20130130

REACTIONS (4)
  - Live birth [None]
  - Foetal exposure during pregnancy [None]
  - Congenital anomaly [None]
  - Maternal drugs affecting foetus [None]
